FAERS Safety Report 4364207-4 (Version None)
Quarter: 2004Q2

REPORT INFORMATION
  Report Type: 
  Country: None (occurrence: None)
  Receive Date: 20040519
  Receipt Date: 20040506
  Transmission Date: 20050107
  Serious: Yes (Death)
  Sender: FDA-Public Use
  Company Number: S04-USA-02684-01

PATIENT
  Age: 71 Year
  Sex: Female
  Weight: 47.6277 kg

DRUGS (5)
  1. LEXAPRO [Suspect]
     Indication: DEPRESSION
     Dosage: 10 MG QD PO
     Route: 048
     Dates: start: 20031001, end: 20040301
  2. LEXAPRO [Suspect]
     Indication: DEPRESSION
     Dosage: 20 MG QD PO
     Route: 048
     Dates: start: 20040301, end: 20040326
  3. WELLBUTRIN [Concomitant]
  4. REMERON [Concomitant]
  5. ZOLOFT (SERTRALINE HYDROHCLORIDE) [Concomitant]

REACTIONS (5)
  - CARBON MONOXIDE POISONING [None]
  - COMPLETED SUICIDE [None]
  - CONDITION AGGRAVATED [None]
  - DEPRESSION [None]
  - INTENTIONAL SELF-INJURY [None]
